FAERS Safety Report 20042199 (Version 1)
Quarter: 2021Q4

REPORT INFORMATION
  Report Type: Spontaneous
  Country: ES (occurrence: ES)
  Receive Date: 20211108
  Receipt Date: 20211108
  Transmission Date: 20220303
  Serious: Yes (Other)
  Sender: FDA-Public Use
  Company Number: ES-AEMPS-1013360

PATIENT
  Age: 54 Year
  Sex: Female

DRUGS (3)
  1. AMOXICILLIN\CLAVULANIC ACID [Suspect]
     Active Substance: AMOXICILLIN\CLAVULANIC ACID
     Indication: Pyelonephritis acute
     Dosage: 1 DOSAGE FORM, 3 TIMES A DAY (1-1-1)
     Route: 048
     Dates: start: 20210913, end: 20210915
  2. CEFTRIAXONE [Suspect]
     Active Substance: CEFTRIAXONE
     Indication: Pyrexia
     Dosage: 2 GRAM, ONCE A DAY
     Route: 042
     Dates: start: 20210907, end: 20210913
  3. ATORVASTATIN [Concomitant]
     Active Substance: ATORVASTATIN
     Indication: Hypercholesterolaemia
     Dosage: 20 MILLIGRAM, ONCE A DAY (0-0-1)
     Route: 048
     Dates: start: 20210611, end: 20210907

REACTIONS (2)
  - Mixed liver injury [Recovered/Resolved]
  - Condition aggravated [Recovered/Resolved]

NARRATIVE: CASE EVENT DATE: 20210915
